FAERS Safety Report 7425183-0 (Version None)
Quarter: 2011Q2

REPORT INFORMATION
  Report Type: 
  Country: None (occurrence: None)
  Receive Date: 20110412
  Receipt Date: 20110328
  Transmission Date: 20111010
  Serious: Yes (Hospitalization, Other)
  Sender: FDA-Public Use
  Company Number: AUR-APL-2011-01204

PATIENT
  Age: 77 Year
  Sex: Female

DRUGS (7)
  1. CORDARONE [Suspect]
     Dosage: 200MG-5 TIMES/WEEK - ORAL
     Route: 048
     Dates: start: 20110120
  2. CORDARONE [Suspect]
     Dosage: 200MG-5 TIMES/WEEK - ORAL
     Route: 048
     Dates: end: 20110117
  3. PREVISCAN [Suspect]
     Indication: ARRHYTHMIA
     Dosage: 10MG-DAILY-ORAL
     Route: 048
     Dates: start: 20101207, end: 20110115
  4. CARDENSIEL [Suspect]
     Indication: ARRHYTHMIA
     Dosage: 2.5MG-DAILY-ORAL
     Route: 048
     Dates: start: 20101207, end: 20110117
  5. INDAPAMIDE [Suspect]
     Dosage: 0.5DF-DAILY-ORAL
     Route: 048
  6. ATENOLOL [Suspect]
     Dosage: 50MG-DAILY-ORAL
     Route: 048
     Dates: end: 20110117
  7. PERINDOPRIL TABLET [Suspect]
     Dosage: 5MG-DAILY-ORAL
     Route: 048

REACTIONS (2)
  - BLOOD PRESSURE DIASTOLIC DECREASED [None]
  - BRADYCARDIA [None]
